FAERS Safety Report 5863433-2 (Version None)
Quarter: 2008Q3

REPORT INFORMATION
  Report Type: 
  Country: None (occurrence: None)
  Receive Date: 20080828
  Receipt Date: 20080821
  Transmission Date: 20090109
  Serious: Yes (Other)
  Sender: FDA-Public Use
  Company Number: PHHY2008JP13761

PATIENT

DRUGS (1)
  1. ZOMETA [Suspect]
     Indication: BONE LESION
     Dosage: UNK
     Route: 042
     Dates: start: 20060601

REACTIONS (3)
  - BONE LESION [None]
  - DENTAL CARIES [None]
  - OSTEONECROSIS [None]
